FAERS Safety Report 25498129 (Version 1)
Quarter: 2025Q3

REPORT INFORMATION
  Report Type: Spontaneous
  Country: GB (occurrence: GB)
  Receive Date: 20250701
  Receipt Date: 20250701
  Transmission Date: 20251021
  Serious: Yes (Other)
  Sender: HETERO
  Company Number: None

PATIENT

DRUGS (1)
  1. ATORVASTATIN [Suspect]
     Active Substance: ATORVASTATIN
     Indication: Product used for unknown indication
     Route: 065

REACTIONS (6)
  - Muscular weakness [Unknown]
  - Muscle tightness [Unknown]
  - Taste disorder [Unknown]
  - Pain in extremity [Unknown]
  - Malaise [Unknown]
  - Dysgeusia [Unknown]
